FAERS Safety Report 9569906 (Version 2)
Quarter: 2013Q4

REPORT INFORMATION
  Report Type: Spontaneous
  Country: US (occurrence: US)
  Receive Date: 20130930
  Receipt Date: 20131106
  Transmission Date: 20140711
  Serious: No
  Sender: FDA-Public Use
  Company Number: US-AMGEN-USASP2013064888

PATIENT
  Age: 56 Year
  Sex: Male
  Weight: 134.69 kg

DRUGS (13)
  1. ENBREL [Suspect]
     Indication: RHEUMATOID ARTHRITIS
     Dosage: 50 MG, QWK
     Route: 058
     Dates: start: 20130401, end: 20130817
  2. LISINOPRIL [Concomitant]
     Dosage: 5 MG, QD
     Route: 048
  3. SULINDAC [Concomitant]
     Dosage: 200 MG, BID
     Route: 048
  4. CARVEDILOL [Concomitant]
     Dosage: 25 MG, BID
  5. LASIX                              /00032601/ [Concomitant]
     Dosage: 40 MG, QD
  6. IRON [Concomitant]
     Dosage: 325 MG, BID
     Route: 048
  7. ROPINIROL [Concomitant]
     Dosage: 2 MG, BID
  8. ASA [Concomitant]
     Dosage: 81 MG, QD
  9. POTASSIUM [Concomitant]
     Dosage: 20 MUG, QD
  10. PRILOSEC                           /00661201/ [Concomitant]
     Dosage: 20 MG, QD
  11. CYMBALTA [Concomitant]
     Dosage: 60 MG, QD
  12. SYMBICORT [Concomitant]
     Dosage: 2 PUFF BCD
  13. DULERA [Concomitant]
     Dosage: 2 PUFFS BCD

REACTIONS (4)
  - Rash [Recovered/Resolved]
  - Muscle spasms [Not Recovered/Not Resolved]
  - Gait disturbance [Not Recovered/Not Resolved]
  - Tinea pedis [Unknown]
